FAERS Safety Report 22281834 (Version 1)
Quarter: 2023Q2

REPORT INFORMATION
  Report Type: Report from Study
  Country: US (occurrence: US)
  Receive Date: 20230504
  Receipt Date: 20230504
  Transmission Date: 20230722
  Serious: Yes (Hospitalization)
  Sender: FDA-Public Use
  Company Number: US-ABBVIE-4751664

PATIENT
  Age: 61 Year
  Sex: Female

DRUGS (1)
  1. HUMIRA [Suspect]
     Active Substance: ADALIMUMAB
     Indication: Rheumatoid arthritis
     Route: 058
     Dates: start: 20221213, end: 20221229

REACTIONS (5)
  - Illness [Unknown]
  - Arthritis infective [Recovering/Resolving]
  - COVID-19 pneumonia [Unknown]
  - Hypophagia [Unknown]
  - Renal disorder [Unknown]

NARRATIVE: CASE EVENT DATE: 20230131
